FAERS Safety Report 10425471 (Version 2)
Quarter: 2014Q4

REPORT INFORMATION
  Report Type: Report from Study
  Country: DE (occurrence: DE)
  Receive Date: 20140902
  Receipt Date: 20141125
  Transmission Date: 20150528
  Serious: Yes (Hospitalization)
  Sender: FDA-Public Use
  Company Number: DE-ABBVIE-14K-062-1276800-00

PATIENT
  Age: 48 Year
  Sex: Female
  Weight: 108 kg

DRUGS (1)
  1. HUMIRA [Suspect]
     Active Substance: ADALIMUMAB
     Indication: RHEUMATOID ARTHRITIS
     Route: 058
     Dates: end: 20131017

REACTIONS (3)
  - White blood cell count increased [Unknown]
  - Drug effect decreased [Unknown]
  - Rehabilitation therapy [Unknown]

NARRATIVE: CASE EVENT DATE: 20131017
